FAERS Safety Report 7377374-5 (Version None)
Quarter: 2011Q1

REPORT INFORMATION
  Report Type: 
  Country: None (occurrence: None)
  Receive Date: 20110328
  Receipt Date: 20110323
  Transmission Date: 20110831
  Serious: No
  Sender: FDA-Public Use
  Company Number: US-PFIZER INC-2011065529

PATIENT
  Sex: Female

DRUGS (3)
  1. ZANTAC [Suspect]
     Dosage: UNK
  2. LIPITOR [Suspect]
     Dosage: UNK
  3. CALCIUM [Suspect]
     Dosage: UNK

REACTIONS (1)
  - DYSGEUSIA [None]
